FAERS Safety Report 5270208-4 (Version None)
Quarter: 2007Q1

REPORT INFORMATION
  Report Type: 
  Country: None (occurrence: None)
  Receive Date: 20070320
  Receipt Date: 20070312
  Transmission Date: 20070707
  Serious: Yes (Hospitalization)
  Sender: FDA-Public Use
  Company Number: US-PFIZER INC-2007019569

PATIENT
  Sex: Female
  Weight: 63.5 kg

DRUGS (1)
  1. BEXTRA [Suspect]
     Indication: BACK PAIN
     Dates: start: 20020619, end: 20020731

REACTIONS (3)
  - CARDIAC DISORDER [None]
  - CHEST PAIN [None]
  - INTRA-ABDOMINAL HAEMORRHAGE [None]
